FAERS Safety Report 26002063 (Version 1)
Quarter: 2025Q4

REPORT INFORMATION
  Report Type: Spontaneous
  Country: AU (occurrence: AU)
  Receive Date: 20251105
  Receipt Date: 20251105
  Transmission Date: 20260118
  Serious: Yes (Disabling, Other)
  Sender: MERCK SHARP & DOHME LLC
  Company Number: AU-009507513-2344590

PATIENT
  Age: 56 Year
  Sex: Male

DRUGS (2)
  1. JANUVIA [Suspect]
     Active Substance: SITAGLIPTIN PHOSPHATE
     Indication: Type 2 diabetes mellitus
     Route: 048
     Dates: start: 2024, end: 2025
  2. OZEMPIC [Suspect]
     Active Substance: SEMAGLUTIDE

REACTIONS (7)
  - Arthritis [Recovering/Resolving]
  - Arthralgia [Recovering/Resolving]
  - Joint effusion [Recovering/Resolving]
  - Mobility decreased [Recovering/Resolving]
  - Musculoskeletal stiffness [Recovering/Resolving]
  - Patellofemoral pain syndrome [Recovering/Resolving]
  - Synovial rupture [Recovering/Resolving]

NARRATIVE: CASE EVENT DATE: 20250101
